FAERS Safety Report 7526663-X (Version None)
Quarter: 2011Q2

REPORT INFORMATION
  Report Type: 
  Country: None (occurrence: None)
  Receive Date: 20110606
  Receipt Date: 20110521
  Transmission Date: 20111010
  Serious: Yes (Other)
  Sender: FDA-Public Use
  Company Number: PHHY2011BR44426

PATIENT
  Sex: Female

DRUGS (4)
  1. DIOVAN [Suspect]
     Dosage: 160 MG, UNK
     Dates: start: 20090101
  2. DIOVAN [Suspect]
     Indication: HYPERTENSION
     Dosage: 80 MG, 1 DF
     Dates: start: 19940101, end: 19980101
  3. AMLODIPINE [Suspect]
     Dosage: 5 MG, UNK
  4. EXFORGE [Suspect]
     Indication: HYPERTENSION
     Dosage: 1 DF, 160 MG VALS AND 5 MG AMLO
     Dates: start: 19980101

REACTIONS (5)
  - DRUG INTOLERANCE [None]
  - CHOLELITHIASIS [None]
  - POLYP [None]
  - CATARACT [None]
  - HEARING IMPAIRED [None]
